FAERS Safety Report 23820931 (Version 1)
Quarter: 2024Q2

REPORT INFORMATION
  Report Type: Report from Study
  Country: SG (occurrence: SG)
  Receive Date: 20240506
  Receipt Date: 20240506
  Transmission Date: 20240716
  Serious: Yes (Other)
  Sender: FDA-Public Use
  Company Number: SG-TAKEDA-2024TUS027422

PATIENT
  Age: 12 Year
  Sex: Female
  Weight: 55 kg

DRUGS (2)
  1. ADAMTS13, RECOMBINANT-KRHN [Suspect]
     Active Substance: ADAMTS13, RECOMBINANT-KRHN
     Indication: Thrombotic thrombocytopenic purpura
     Dosage: 1500 INTERNATIONAL UNIT, Q2WEEKS
     Route: 042
     Dates: start: 20220812, end: 20240306
  2. ADAMTS13, RECOMBINANT-KRHN [Suspect]
     Active Substance: ADAMTS13, RECOMBINANT-KRHN
     Dosage: 500 INTERNATIONAL UNIT, Q2WEEKS
     Route: 042

REACTIONS (2)
  - Thrombocytopenia [Recovered/Resolved with Sequelae]
  - Product distribution issue [Unknown]

NARRATIVE: CASE EVENT DATE: 20240327
